FAERS Safety Report 9303232 (Version 2)
Quarter: 2013Q2

REPORT INFORMATION
  Report Type: Spontaneous
  Country: ES (occurrence: ES)
  Receive Date: 20130522
  Receipt Date: 20130603
  Transmission Date: 20140414
  Serious: Yes (Death, Hospitalization)
  Sender: FDA-Public Use
  Company Number: ES-JNJFOC-20130511050

PATIENT
  Age: 36 Year
  Sex: Female

DRUGS (11)
  1. ITRACONAZOLE [Suspect]
     Indication: ORAL CANDIDIASIS
     Route: 048
     Dates: start: 20030306
  2. FLUCONAZOLE [Suspect]
     Indication: ORAL CANDIDIASIS
     Route: 065
  3. VORICONAZOLE [Suspect]
     Indication: ASPERGILLUS INFECTION
     Route: 048
     Dates: start: 2003, end: 200403
  4. VORICONAZOLE [Suspect]
     Indication: ASPERGILLUS INFECTION
     Route: 048
     Dates: start: 200409
  5. VORICONAZOLE [Suspect]
     Indication: ASPERGILLUS INFECTION
     Dosage: FOR 25 DAYS
     Route: 048
     Dates: start: 200405
  6. VORICONAZOLE [Suspect]
     Indication: BRONCHOPULMONARY ASPERGILLOSIS
     Route: 042
  7. VORICONAZOLE [Suspect]
     Indication: BRONCHOPULMONARY ASPERGILLOSIS
     Route: 042
  8. AMPHOTERICIN B [Concomitant]
     Indication: BRONCHOPULMONARY ASPERGILLOSIS
     Route: 065
  9. CASPOFUNGIN [Concomitant]
     Indication: BRONCHOPULMONARY ASPERGILLOSIS
     Route: 065
     Dates: start: 200405
  10. CASPOFUNGIN [Concomitant]
     Indication: BRONCHOPULMONARY ASPERGILLOSIS
     Route: 065
     Dates: start: 200403
  11. AMPHOTERICIN B [Concomitant]
     Indication: BRONCHOPULMONARY ASPERGILLOSIS
     Route: 065
     Dates: start: 200403

REACTIONS (2)
  - Bronchopulmonary aspergillosis [Fatal]
  - Drug resistance [Not Recovered/Not Resolved]
